FAERS Safety Report 8800651 (Version 2)
Quarter: 2015Q1

REPORT INFORMATION
  Report Type: Report from Study
  Country: US (occurrence: US)
  Receive Date: 20120921
  Receipt Date: 20150316
  Transmission Date: 20150721
  Serious: Yes (Death)
  Sender: FDA-Public Use
  Company Number: US-ROCHE-1123226

PATIENT
  Sex: Female
  Weight: 64.47 kg

DRUGS (25)
  1. XELODA [Suspect]
     Active Substance: CAPECITABINE
     Indication: BREAST CANCER FEMALE
     Route: 065
  2. PEGFILGRASTIM [Concomitant]
     Active Substance: PEGFILGRASTIM
     Route: 065
  3. LEVOXYL [Concomitant]
     Active Substance: LEVOTHYROXINE SODIUM
     Route: 065
  4. LASIX [Concomitant]
     Active Substance: FUROSEMIDE
     Route: 065
  5. HEPARIN [Concomitant]
     Active Substance: HEPARIN SODIUM
     Route: 065
  6. AROMASIN [Concomitant]
     Active Substance: EXEMESTANE
  7. ALOXI [Concomitant]
     Active Substance: PALONOSETRON HYDROCHLORIDE
     Route: 065
  8. ZOFRAN [Concomitant]
     Active Substance: ONDANSETRON HYDROCHLORIDE
     Route: 065
  9. CYTOXAN [Concomitant]
     Active Substance: CYCLOPHOSPHAMIDE
     Route: 042
  10. LEUCOVORIN [Concomitant]
     Active Substance: LEUCOVORIN
  11. GEMZAR [Concomitant]
     Active Substance: GEMCITABINE HYDROCHLORIDE
  12. TAXOL [Concomitant]
     Active Substance: PACLITAXEL
  13. BENADRYL [Concomitant]
     Active Substance: DIPHENHYDRAMINE HYDROCHLORIDE
     Route: 065
  14. EMEND [Concomitant]
     Active Substance: APREPITANT
     Route: 048
  15. EPIRUBICIN [Concomitant]
     Active Substance: EPIRUBICIN
     Route: 042
  16. CYCLOPHOSPHAMIDE. [Concomitant]
     Active Substance: CYCLOPHOSPHAMIDE
  17. AVASTIN [Suspect]
     Active Substance: BEVACIZUMAB
     Indication: BREAST CANCER FEMALE
     Route: 042
     Dates: start: 20060113
  18. ABRAXANE [Concomitant]
     Active Substance: PACLITAXEL
     Route: 065
     Dates: start: 200504, end: 200509
  19. 5-FLUOROURACIL [Concomitant]
     Active Substance: FLUOROURACIL
     Route: 042
  20. DECADRON [Concomitant]
     Active Substance: DEXAMETHASONE
     Route: 065
  21. IRINOTECAN [Concomitant]
     Active Substance: IRINOTECAN
  22. NAVELBINE [Concomitant]
     Active Substance: VINORELBINE TARTRATE
  23. ASPIRIN. [Concomitant]
     Active Substance: ASPIRIN
  24. ARANESP [Concomitant]
     Active Substance: DARBEPOETIN ALFA
     Route: 065
  25. FASLODEX [Concomitant]
     Active Substance: FULVESTRANT

REACTIONS (15)
  - Cough [Unknown]
  - Osteoarthritis [Unknown]
  - Hilar lymphadenopathy [Unknown]
  - Paranasal sinus hypersecretion [Unknown]
  - Oedema peripheral [Unknown]
  - Disease progression [Unknown]
  - Scab [Unknown]
  - Off label use [Unknown]
  - Death [Fatal]
  - Neuropathy peripheral [Unknown]
  - Fatigue [Unknown]
  - Rhinorrhoea [Unknown]
  - Facet joint syndrome [Unknown]
  - Drug intolerance [Unknown]
  - Anaemia [Unknown]
